FAERS Safety Report 11377478 (Version 3)
Quarter: 2015Q3

REPORT INFORMATION
  Report Type: Report from Study
  Country: DE (occurrence: DE)
  Receive Date: 20150813
  Receipt Date: 20150904
  Transmission Date: 20151125
  Serious: Yes (Hospitalization)
  Sender: FDA-Public Use
  Company Number: PHHO2015DE012942

PATIENT
  Age: 63 Year
  Sex: Male
  Weight: 72.5 kg

DRUGS (4)
  1. PREDNISON [Concomitant]
     Active Substance: PREDNISONE
     Indication: RENAL TRANSPLANT
     Dosage: 30 MG
     Route: 065
     Dates: start: 20150614
  2. TACROLIMUS. [Suspect]
     Active Substance: TACROLIMUS
     Indication: RENAL TRANSPLANT
     Dosage: 4 MG, BID (4/4MG)
     Route: 065
     Dates: start: 20150614
  3. CERTICAN [Suspect]
     Active Substance: EVEROLIMUS
     Indication: RENAL TRANSPLANT
     Dosage: 2.5 MG, BID (2.5/2.5MG)
     Route: 048
     Dates: start: 20150614, end: 20150804
  4. CELLCEPT [Concomitant]
     Active Substance: MYCOPHENOLATE MOFETIL\MYCOPHENOLATE MOFETIL HYDROCHLORIDE
     Indication: RENAL TRANSPLANT
     Route: 065

REACTIONS (3)
  - Kidney transplant rejection [Not Recovered/Not Resolved]
  - Wound infection [Unknown]
  - Complications of transplanted kidney [Not Recovered/Not Resolved]

NARRATIVE: CASE EVENT DATE: 20150615
